FAERS Safety Report 4727154-1 (Version None)
Quarter: 2005Q3

REPORT INFORMATION
  Report Type: 
  Country: None (occurrence: None)
  Receive Date: 20050726
  Receipt Date: 20050715
  Transmission Date: 20060218
  Serious: Yes (Hospitalization)
  Sender: FDA-Public Use
  Company Number: KII-2005-0017602

PATIENT
  Age: 2 Year
  Sex: Female

DRUGS (3)
  1. OXYCONTIN [Suspect]
     Dosage: ORAL
     Route: 048
     Dates: start: 20050619
  2. BENZODIAZEPINE DERIVATIVES () [Suspect]
     Dosage: ORAL
     Route: 048
     Dates: start: 20050619
  3. BUTALBITAL W/ACETAMINOPHEN (BUTALBITAL) [Suspect]
     Dosage: ORAL
     Route: 048
     Dates: start: 20050619

REACTIONS (2)
  - ACCIDENTAL DRUG INTAKE BY CHILD [None]
  - DEPRESSED LEVEL OF CONSCIOUSNESS [None]
